FAERS Safety Report 11499133 (Version 3)
Quarter: 2017Q1

REPORT INFORMATION
  Report Type: Spontaneous
  Country: US (occurrence: US)
  Receive Date: 20150913
  Receipt Date: 20170331
  Transmission Date: 20170428
  Serious: Yes (Other)
  Sender: FDA-Public Use
  Company Number: US-ELI_LILLY_AND_COMPANY-US201509001957

PATIENT
  Sex: Female

DRUGS (3)
  1. WELLBUTRIN [Concomitant]
     Active Substance: BUPROPION HYDROCHLORIDE
     Indication: DEPRESSION
     Dosage: 300 MG, UNKNOWN
     Route: 065
  2. CYMBALTA [Suspect]
     Active Substance: DULOXETINE HYDROCHLORIDE
     Indication: PAIN
     Dosage: UNK UNK, QD
     Route: 065
     Dates: start: 20070710
  3. CYMBALTA [Suspect]
     Active Substance: DULOXETINE HYDROCHLORIDE
     Indication: DEPRESSION
     Dosage: 20 MG, BID
     Route: 048

REACTIONS (16)
  - Tinnitus [Unknown]
  - Mood swings [Unknown]
  - Sleep disorder [Unknown]
  - Dizziness [Unknown]
  - Anxiety [Unknown]
  - Depressed mood [Unknown]
  - Nausea [Unknown]
  - Dysphoria [Unknown]
  - Suicidal ideation [Unknown]
  - Suicide attempt [Unknown]
  - Nightmare [Unknown]
  - Vertigo [Unknown]
  - Paraesthesia [Unknown]
  - Hyperhidrosis [Unknown]
  - Drug withdrawal syndrome [Unknown]
  - Fatigue [Unknown]
